FAERS Safety Report 8384221-1 (Version None)
Quarter: 2012Q2

REPORT INFORMATION
  Report Type: 
  Country: None (occurrence: None)
  Receive Date: 20120524
  Receipt Date: 20120521
  Transmission Date: 20120825
  Serious: Yes (Death, Hospitalization)
  Sender: FDA-Public Use
  Company Number: BR-NOVOPROD-346675

PATIENT
  Age: 59 Year
  Sex: Female
  Weight: 71 kg

DRUGS (10)
  1. MORPHINE [Concomitant]
     Dosage: UNK
     Route: 058
  2. DIMETHICONE [Concomitant]
     Dosage: UNK
  3. LEVOTHYROXINE SODIUM [Concomitant]
     Dosage: 50 MCG, QD
  4. BROMAZEPAM [Concomitant]
     Dosage: 3 MG, QD
  5. VICTOZA [Suspect]
     Indication: TYPE 2 DIABETES MELLITUS
     Dosage: 1.8 MG, QD
     Route: 058
     Dates: start: 20110908, end: 20111217
  6. AMITRIPTYLINE HCL [Concomitant]
     Dosage: 25 MG, BID
  7. METFORMIN HCL [Concomitant]
     Dosage: 500 MG, UNK
     Route: 048
  8. AMARYL [Concomitant]
     Dosage: 2 MG, BID
     Route: 048
  9. ESOMEPRAZOLE MAGNESIUM [Concomitant]
     Dosage: 40 MG, BID
  10. INSULIN HUMAN [Concomitant]
     Dosage: 100 UNK, PRN
     Route: 058

REACTIONS (1)
  - PANCREATIC CARCINOMA [None]
